FAERS Safety Report 19251427 (Version 1)
Quarter: 2021Q2

REPORT INFORMATION
  Report Type: Other
  Country: FR (occurrence: FR)
  Receive Date: 20210512
  Receipt Date: 20210512
  Transmission Date: 20210717
  Serious: Yes (Hospitalization)
  Sender: FDA-Public Use
  Company Number: FR-GE HEALTHCARE LIFE SCIENCES-2021CSU002253

PATIENT

DRUGS (2)
  1. OMNIPAQUE [Suspect]
     Active Substance: IOHEXOL
     Indication: ANEURYSM REPAIR
     Dosage: 200 TO 400 ML, SINGLE
     Route: 013
     Dates: start: 20180725, end: 20180725
  2. OMNIPAQUE [Suspect]
     Active Substance: IOHEXOL
     Indication: ANEURYSM

REACTIONS (1)
  - Ophthalmic migraine [Recovered/Resolved]

NARRATIVE: CASE EVENT DATE: 20180725
